FAERS Safety Report 8761311 (Version 1)
Quarter: 2012Q4

REPORT INFORMATION
  Report Type: 
  Country: MK (occurrence: MK)
  Receive Date: 20120905
  Receipt Date: 20120905
  Transmission Date: 20130627
  Serious: Yes (Death)
  Sender: FDA-Public Use
  Company Number: MK-BAYER-2012-089849

PATIENT
  Age: 55 Year
  Sex: Female

DRUGS (1)
  1. QLAIRA [Suspect]
     Indication: POSTMENOPAUSAL HAEMORRHAGE
     Dosage: UNK
     Route: 048
     Dates: start: 201205, end: 201205

REACTIONS (2)
  - Pulmonary embolism [Fatal]
  - Dyspnoea [Fatal]
